FAERS Safety Report 7240744-X (Version None)
Quarter: 2011Q1

REPORT INFORMATION
  Report Type: 
  Country: None (occurrence: None)
  Receive Date: 20110124
  Receipt Date: 20100316
  Transmission Date: 20110831
  Serious: No
  Sender: FDA-Public Use
  Company Number: US-KINGPHARMUSA00001-K201000317

PATIENT
  Sex: Female

DRUGS (17)
  1. THEOPHYLLINE [Concomitant]
     Dosage: UNK
  2. FLOVENT [Concomitant]
     Dosage: UNK
  3. METHOTREXATE [Concomitant]
     Dosage: UNK
  4. EPIPEN [Suspect]
     Dosage: 0.3 MG, TWICE
     Route: 030
     Dates: start: 20100301, end: 20100301
  5. RESTORIL [Concomitant]
     Dosage: UNK
  6. FEXOFENADINE HCL [Concomitant]
     Dosage: UNK
  7. LASIX [Concomitant]
     Dosage: UNK
  8. XANAX [Concomitant]
     Dosage: UNK
  9. ELAVIL [Concomitant]
     Dosage: UNK
  10. LORTAB [Concomitant]
     Dosage: UNK
  11. CITALOPRAM [Concomitant]
     Dosage: UNK
  12. XOPENEX [Concomitant]
     Dosage: UNK
  13. ASTELIN [Concomitant]
     Dosage: UNK
     Route: 045
  14. PREDNISONE [Concomitant]
     Dosage: UNK
  15. DUONEB [Concomitant]
     Dosage: UNK
  16. BACTRIM DS [Concomitant]
     Dosage: UNK
  17. LYRICA [Concomitant]
     Dosage: UNK

REACTIONS (1)
  - DRUG INEFFECTIVE [None]
